FAERS Safety Report 4388995-6 (Version None)
Quarter: 2004Q3

REPORT INFORMATION
  Report Type: 
  Country: None (occurrence: None)
  Receive Date: 20040701
  Receipt Date: 20040701
  Transmission Date: 20050211
  Serious: No
  Sender: FDA-Public Use
  Company Number: None

PATIENT
  Sex: Male

DRUGS (3)
  1. CEPHALEXIN [Suspect]
     Indication: INFECTION
     Dosage: 500 MG BID
     Dates: start: 20040415, end: 20040421
  2. INDOMETHACIN 25MG CAP [Concomitant]
  3. TERBINAFIN [Concomitant]

REACTIONS (1)
  - RASH PRURITIC [None]
